FAERS Safety Report 15600613 (Version 8)
Quarter: 2024Q1

REPORT INFORMATION
  Report Type: Report from Study
  Country: FR (occurrence: FR)
  Receive Date: 20181109
  Receipt Date: 20240319
  Transmission Date: 20240410
  Serious: Yes (Life-Threatening, Hospitalization, Other)
  Sender: FDA-Public Use
  Company Number: FR-AUROBINDO-AUR-APL-2018-053679

PATIENT
  Age: 21 Year
  Sex: Female
  Weight: 107 kg

DRUGS (7)
  1. ACETAMINOPHEN [Interacting]
     Active Substance: ACETAMINOPHEN
     Indication: Intentional overdose
     Dosage: 16 GRAM, SINGLE ; IN TOTAL
     Route: 048
  2. RIVAROXABAN [Interacting]
     Active Substance: RIVAROXABAN
     Indication: Anticoagulant therapy
     Dosage: 420 MILLIGRAM, SINGLE ; IN TOTAL
     Route: 048
  3. RIVAROXABAN [Interacting]
     Active Substance: RIVAROXABAN
     Indication: Intentional overdose
  4. RIVAROXABAN [Interacting]
     Active Substance: RIVAROXABAN
     Indication: Suicide attempt
  5. VALPROIC ACID [Interacting]
     Active Substance: VALPROIC ACID
     Indication: Product used for unknown indication
     Dosage: 9 GRAM, SINGLE ; IN TOTAL
     Route: 048
  6. PROPRANOLOL [Interacting]
     Active Substance: PROPRANOLOL HYDROCHLORIDE
     Indication: Product used for unknown indication
     Dosage: 80 MILLIGRAM, SINGLE ; IN TOTAL
     Route: 048
  7. VALPROMIDE [Interacting]
     Active Substance: VALPROMIDE
     Indication: Intentional overdose
     Dosage: 9 GRAM, SINGLE ; IN TOTAL
     Route: 065

REACTIONS (11)
  - Suicide attempt [Unknown]
  - Poisoning deliberate [Recovered/Resolved]
  - Toxicity to various agents [Recovered/Resolved]
  - Bradycardia [Unknown]
  - Drug level increased [Recovered/Resolved]
  - Off label use [Unknown]
  - Product use issue [Unknown]
  - Intentional overdose [Unknown]
  - Overdose [Unknown]
  - Intentional product misuse [Unknown]
  - Drug interaction [Unknown]
